FAERS Safety Report 7501429-5 (Version None)
Quarter: 2011Q2

REPORT INFORMATION
  Report Type: 
  Country: None (occurrence: None)
  Receive Date: 20110524
  Receipt Date: 20110517
  Transmission Date: 20111010
  Serious: Yes (Death)
  Sender: FDA-Public Use
  Company Number: US-CEPHALON-2011002430

PATIENT
  Age: 48 Year
  Sex: Male
  Weight: 182 kg

DRUGS (1)
  1. TRISENOX [Suspect]
     Indication: ACUTE PROMYELOCYTIC LEUKAEMIA
     Route: 041
     Dates: start: 20110101, end: 20110101

REACTIONS (1)
  - DEATH [None]
